FAERS Safety Report 5881787-8 (Version None)
Quarter: 2008Q3

REPORT INFORMATION
  Report Type: 
  Country: None (occurrence: None)
  Receive Date: 20080912
  Receipt Date: 20080714
  Transmission Date: 20090109
  Serious: No
  Sender: FDA-Public Use
  Company Number: US-ABBOTT-08P-163-0462665-00

PATIENT
  Sex: Female
  Weight: 90.8 kg

DRUGS (5)
  1. HUMIRA [Suspect]
     Indication: RHEUMATOID ARTHRITIS
     Route: 050
     Dates: start: 20080201
  2. METHOTREXATE [Concomitant]
     Indication: RHEUMATOID ARTHRITIS
     Dosage: 8 PILLS EVERY MONDAY
     Route: 048
     Dates: start: 19950101
  3. PREDNISONE TAB [Concomitant]
     Indication: DRUG USE FOR UNKNOWN INDICATION
     Route: 048
     Dates: start: 19980101
  4. FOLIC ACID [Concomitant]
     Indication: VITAMIN SUPPLEMENTATION
     Route: 048
  5. SUMATRIPTAN SUCCINATE [Concomitant]
     Indication: MIGRAINE
     Route: 048
     Dates: start: 20040101

REACTIONS (2)
  - BLISTER [None]
  - SUNBURN [None]
